FAERS Safety Report 13490495 (Version 1)
Quarter: 2017Q2

REPORT INFORMATION
  Report Type: Report from Study
  Country: None (occurrence: CA)
  Receive Date: 20170427
  Receipt Date: 20170427
  Transmission Date: 20170830
  Serious: Yes (Hospitalization, Other)
  Sender: FDA-Public Use
  Company Number: CA-ABBVIE-17K-028-1945990-00

PATIENT
  Age: 40 Year
  Sex: Female

DRUGS (2)
  1. HUMIRA [Suspect]
     Active Substance: ADALIMUMAB
     Route: 058
     Dates: end: 2017
  2. HUMIRA [Suspect]
     Active Substance: ADALIMUMAB
     Indication: RHEUMATOID ARTHRITIS
     Route: 058
     Dates: start: 20080101, end: 2016

REACTIONS (8)
  - Exposure during pregnancy [Unknown]
  - Antinuclear antibody positive [Unknown]
  - Live birth [Unknown]
  - Premature labour [Unknown]
  - Complication of pregnancy [Unknown]
  - Viral upper respiratory tract infection [Recovered/Resolved]
  - Oropharyngeal pain [Not Recovered/Not Resolved]
  - Haemorrhage in pregnancy [Recovered/Resolved]

NARRATIVE: CASE EVENT DATE: 2016
